FAERS Safety Report 9306596 (Version 2)
Quarter: 2013Q3

REPORT INFORMATION
  Report Type: Spontaneous
  Country: DE (occurrence: DE)
  Receive Date: 20130523
  Receipt Date: 20130801
  Transmission Date: 20140515
  Serious: Yes (Life-Threatening, Hospitalization)
  Sender: FDA-Public Use
  Company Number: DE-EISAI INC-E2090-02653-SPO-DE

PATIENT
  Age: 57 Year
  Sex: Female
  Weight: 81 kg

DRUGS (5)
  1. ZONEGRAN [Suspect]
     Indication: EPILEPSY
     Route: 048
     Dates: start: 20120801, end: 20120807
  2. ZONEGRAN [Suspect]
     Route: 048
     Dates: start: 20120808, end: 20120814
  3. ZONEGRAN [Suspect]
     Route: 048
     Dates: start: 20120815, end: 20120821
  4. ZONEGRAN [Suspect]
     Dosage: 300 MG DAILY
     Route: 048
     Dates: start: 20120822, end: 20130116
  5. TRENTAL 400 RETARD [Concomitant]
     Route: 048

REACTIONS (2)
  - Homicidal ideation [Recovered/Resolved]
  - Suicidal ideation [Recovered/Resolved]
